FAERS Safety Report 10737666 (Version 1)
Quarter: 2015Q1

REPORT INFORMATION
  Report Type: Spontaneous
  Country: US (occurrence: None)
  Receive Date: 20150122
  Receipt Date: 20150122
  Transmission Date: 20150721
  Serious: No
  Sender: FDA-Public Use
  Company Number: None

PATIENT
  Sex: Female

DRUGS (7)
  1. FENOFIBRATE. [Suspect]
     Active Substance: FENOFIBRATE
     Dosage: NO LONGER HAVE IT?
  2. TRILIPIX [Concomitant]
     Active Substance: FENOFIBRIC ACID
  3. LISINOPRIL. [Concomitant]
     Active Substance: LISINOPRIL
  4. ECOTRIN [Concomitant]
     Active Substance: ASPIRIN
  5. FLUOXETINE [Concomitant]
     Active Substance: FLUOXETINE\FLUOXETINE HYDROCHLORIDE
  6. CENTRUM [Concomitant]
     Active Substance: VITAMINS
  7. FENOFIBRATE. [Suspect]
     Active Substance: FENOFIBRATE
     Indication: BLOOD TRIGLYCERIDES ABNORMAL
     Dosage: NO LONGER HAVE IT?

REACTIONS (6)
  - Dry mouth [None]
  - Nausea [None]
  - Confusional state [None]
  - Dizziness [None]
  - Feeling hot [None]
  - Haematochezia [None]
